FAERS Safety Report 8991780 (Version 1)
Quarter: 2012Q4

REPORT INFORMATION
  Report Type: 
  Country: AT (occurrence: AT)
  Receive Date: 20121231
  Receipt Date: 20121231
  Transmission Date: 20130627
  Serious: Yes (Life-Threatening, Hospitalization)
  Sender: FDA-Public Use
  Company Number: AT-JNJFOC-20121212089

PATIENT
  Age: 41 Year
  Sex: Male

DRUGS (7)
  1. INFLIXIMAB, RECOMBINANT [Suspect]
     Indication: ANKYLOSING SPONDYLITIS
     Route: 042
     Dates: start: 20121218, end: 20121218
  2. INFLIXIMAB, RECOMBINANT [Suspect]
     Indication: ANKYLOSING SPONDYLITIS
     Route: 042
     Dates: start: 2012
  3. INFLIXIMAB, RECOMBINANT [Suspect]
     Indication: ANKYLOSING SPONDYLITIS
     Route: 042
     Dates: start: 2010
  4. NOVALGIN [Concomitant]
     Indication: ANKYLOSING SPONDYLITIS
     Dosage: total daily dose 3x20 gtts
     Route: 048
     Dates: start: 2010
  5. PANTOLOC [Concomitant]
     Indication: GASTROINTESTINAL DISORDER THERAPY
     Dosage: strength is 20 (units unspecified)
     Route: 048
     Dates: start: 2010
  6. ATACAND [Concomitant]
     Indication: HYPERTENSION
     Dosage: strength 10 (units unspecified) and daily dose is 1
     Route: 048
     Dates: start: 2012
  7. TRAMAL [Concomitant]
     Indication: ANKYLOSING SPONDYLITIS
     Dosage: strength 100 (unspecified units) and total daily dose was 1-1
     Route: 048
     Dates: start: 2010

REACTIONS (3)
  - Torsade de pointes [Recovered/Resolved]
  - Infusion related reaction [Recovered/Resolved]
  - Chills [Recovered/Resolved]
